FAERS Safety Report 8022757 (Version 2)
Quarter: 2014Q1

REPORT INFORMATION
  Report Type: Report from Study
  Country: US (occurrence: US)
  Receive Date: 20110706
  Receipt Date: 20140312
  Transmission Date: 20141002
  Serious: Yes (Other)
  Sender: FDA-Public Use
  Company Number: US-ELI_LILLY_AND_COMPANY-US201106007594

PATIENT
  Sex: Female

DRUGS (1)
  1. SOMATROPIN [Suspect]
     Indication: GROWTH HORMONE DEFICIENCY
     Dosage: 12MG, QD
     Dates: start: 20101223

REACTIONS (9)
  - Benign neoplasm of adrenal gland [Unknown]
  - Macular degeneration [Not Recovered/Not Resolved]
  - Presbyopia [Not Recovered/Not Resolved]
  - Visual acuity reduced [Not Recovered/Not Resolved]
  - Memory impairment [Unknown]
  - Menopause [Unknown]
  - Drug dose omission [Unknown]
  - Injection site haemorrhage [Unknown]
  - Thyroid disorder [Unknown]
